FAERS Safety Report 14199633 (Version 1)
Quarter: 2017Q4

REPORT INFORMATION
  Report Type: Spontaneous
  Country: US (occurrence: US)
  Receive Date: 20171117
  Receipt Date: 20171117
  Transmission Date: 20180321
  Serious: Yes (Disabling)
  Sender: FDA-Public Use
  Company Number: None

PATIENT
  Sex: Male
  Weight: 56.25 kg

DRUGS (4)
  1. ALBUTEROL INHALER [Concomitant]
     Active Substance: ALBUTEROL
  2. IBUPROFEN. [Concomitant]
     Active Substance: IBUPROFEN
  3. ALPRAZOLAM. [Suspect]
     Active Substance: ALPRAZOLAM
     Indication: GENERALISED ANXIETY DISORDER
     Route: 048
     Dates: start: 20110201, end: 20170201
  4. RANITIDINE. [Concomitant]
     Active Substance: RANITIDINE

REACTIONS (11)
  - Quality of life decreased [None]
  - Loss of personal independence in daily activities [None]
  - Panic disorder [None]
  - Impaired work ability [None]
  - Fear [None]
  - Insomnia [None]
  - Fatigue [None]
  - Cognitive disorder [None]
  - Depression [None]
  - Anxiety [None]
  - Disturbance in attention [None]

NARRATIVE: CASE EVENT DATE: 20111101
